FAERS Safety Report 15076884 (Version 2)
Quarter: 2018Q4

REPORT INFORMATION
  Report Type: Spontaneous
  Country: US (occurrence: US)
  Receive Date: 20180627
  Receipt Date: 20181206
  Transmission Date: 20190204
  Serious: Yes (Other)
  Sender: FDA-Public Use
  Company Number: US-BAYER-2018-117465

PATIENT
  Age: 2 Year
  Sex: Female
  Weight: 13.61 kg

DRUGS (1)
  1. COPPERTONE KIDS [Suspect]
     Active Substance: AVOBENZONE\HOMOSALATE\OCTISALATE\OXYBENZONE
     Dosage: 1 DF, ONCE
     Route: 047
     Dates: start: 20180617, end: 20180617

REACTIONS (3)
  - Swelling face [Not Recovered/Not Resolved]
  - Chemical burns of eye [Not Recovered/Not Resolved]
  - Accidental exposure to product [Unknown]

NARRATIVE: CASE EVENT DATE: 20180618
